FAERS Safety Report 5530508-7 (Version None)
Quarter: 2007Q4

REPORT INFORMATION
  Report Type: 
  Country: None (occurrence: None)
  Receive Date: 20071119
  Receipt Date: 20070925
  Transmission Date: 20080405
  Serious: No
  Sender: FDA-Public Use
  Company Number: TPA2007A02057

PATIENT
  Age: 83 Year
  Sex: Female
  Weight: 61.2356 kg

DRUGS (5)
  1. ROZEREM [Suspect]
     Indication: INSOMNIA
     Dosage: PER ORAL
     Route: 048
     Dates: start: 20070903
  2. FOSAMAX [Concomitant]
  3. ANALGESICS (ANALGESICS) [Concomitant]
  4. MULTI-VITAMINS [Concomitant]
  5. AMBIEN [Concomitant]

REACTIONS (1)
  - MIDDLE INSOMNIA [None]
